FAERS Safety Report 14946674 (Version 1)
Quarter: 2018Q2

REPORT INFORMATION
  Report Type: Spontaneous
  Country: FR (occurrence: FR)
  Receive Date: 20180529
  Receipt Date: 20180529
  Transmission Date: 20180711
  Serious: Yes (Other)
  Sender: FDA-Public Use
  Company Number: FR-MERCK KGAA-2048567

PATIENT
  Age: 62 Year
  Sex: Female

DRUGS (1)
  1. NOVOTHYROX [Suspect]
     Active Substance: LEVOTHYROXINE SODIUM
     Indication: PRODUCT USED FOR UNKNOWN INDICATION

REACTIONS (19)
  - Asthenia [None]
  - Dizziness [None]
  - Abdominal pain upper [None]
  - Pain in extremity [None]
  - Blood thyroid stimulating hormone increased [Recovered/Resolved]
  - Mood swings [None]
  - Depression [None]
  - General physical health deterioration [None]
  - Angina pectoris [None]
  - Social avoidant behaviour [None]
  - Headache [None]
  - Crying [None]
  - Fatigue [None]
  - Pain [None]
  - Irritability [None]
  - Malaise [None]
  - Stress [None]
  - Vomiting [None]
  - Alopecia [None]

NARRATIVE: CASE EVENT DATE: 20170815
